FAERS Safety Report 5372700-0 (Version None)
Quarter: 2007Q2

REPORT INFORMATION
  Report Type: 
  Country: None (occurrence: None)
  Receive Date: 20070627
  Receipt Date: 20070618
  Transmission Date: 20071010
  Serious: Yes (Hospitalization)
  Sender: FDA-Public Use
  Company Number: FR-PFIZER INC-2006060653

PATIENT
  Sex: Male

DRUGS (8)
  1. SU-011,248 [Suspect]
     Indication: METASTATIC RENAL CELL CARCINOMA
     Route: 048
     Dates: start: 20060419, end: 20060507
  2. SU-011,248 [Suspect]
     Route: 048
     Dates: start: 20060511, end: 20060517
  3. PERINDOPRIL ERBUMINE [Concomitant]
     Dosage: TEXT:UNKNOWN-FREQ:UNKNOWN
     Route: 065
  4. AMLODIPINE [Concomitant]
     Dosage: TEXT:UNKNOWN-FREQ:UNKNOWN
     Route: 065
  5. ASPIRIN [Concomitant]
     Dosage: TEXT:UNKNOWN-FREQ:UNKNOWN
     Route: 065
  6. TENORMIN [Concomitant]
     Dosage: TEXT:UNKNOWN-FREQ:UNKNOWN
     Route: 065
  7. DIAMICRON [Concomitant]
     Dosage: TEXT:UNKNOWN-FREQ:UNKNOWN
     Route: 065
  8. GLUCOPHAGE [Concomitant]
     Dosage: TEXT:UNKNOWN-FREQ:UNKNOWN
     Route: 065

REACTIONS (5)
  - ASTHENIA [None]
  - CHILLS [None]
  - CONFUSIONAL STATE [None]
  - NAUSEA [None]
  - PYREXIA [None]
